FAERS Safety Report 10706351 (Version 2)
Quarter: 2015Q1

REPORT INFORMATION
  Report Type: Spontaneous
  Country: BR (occurrence: None)
  Receive Date: 20150109
  Receipt Date: 20150209
  Transmission Date: 20150721
  Serious: Yes (Other)
  Sender: FDA-Public Use
  Company Number: 2014-003707

PATIENT
  Age: 74 Year
  Sex: Male
  Weight: 99 kg

DRUGS (8)
  1. TEGRETOL [Suspect]
     Active Substance: CARBAMAZEPINE
     Indication: EPILEPSY
     Route: 048
     Dates: start: 1984
  2. ENABLEX [Suspect]
     Active Substance: DARIFENACIN\DARIFENACIN HYDROBROMIDE
     Indication: HYPOTONIC URINARY BLADDER
     Route: 048
     Dates: start: 2008
  3. LOSARTAN [Concomitant]
     Active Substance: LOSARTAN
  4. COLECALCIFEROL [Concomitant]
     Active Substance: CHOLECALCIFEROL
  5. FUROSEMIDA / 00032601/ (FUROSEMIDE) [Concomitant]
  6. GARDENAL /00023201/ (PHENOBARBITAL) [Concomitant]
  7. MODURETIC (AMILORIDE HYDROCHLORIDE, HYDROCHLOROTHIAZIDE) [Concomitant]
  8. RASILEZ [Suspect]
     Active Substance: ALISKIREN
     Indication: HYPERTENSION
     Route: 048
     Dates: start: 201211

REACTIONS (5)
  - Off label use [None]
  - Dementia Alzheimer^s type [None]
  - Prostate cancer [None]
  - Cardiac failure congestive [None]
  - Epilepsy [None]

NARRATIVE: CASE EVENT DATE: 2011
